FAERS Safety Report 24776096 (Version 1)
Quarter: 2024Q4

REPORT INFORMATION
  Report Type: Spontaneous
  Country: US (occurrence: US)
  Receive Date: 20241226
  Receipt Date: 20241226
  Transmission Date: 20250115
  Serious: No
  Sender: ELI LILLY AND COMPANY
  Company Number: US-ELI_LILLY_AND_COMPANY-US202412014085

PATIENT
  Age: 36 Year
  Sex: Male

DRUGS (1)
  1. TIRZEPATIDE [Suspect]
     Active Substance: TIRZEPATIDE
     Indication: Weight control
     Dosage: 10 MG, UNKNOWN
     Route: 065
     Dates: start: 202407

REACTIONS (3)
  - Anxiety [Not Recovered/Not Resolved]
  - Mood swings [Not Recovered/Not Resolved]
  - Product tampering [Unknown]

NARRATIVE: CASE EVENT DATE: 20240701
